FAERS Safety Report 21888220 (Version 1)
Quarter: 2023Q1

REPORT INFORMATION
  Report Type: Spontaneous
  Country: ET (occurrence: ET)
  Receive Date: 20230120
  Receipt Date: 20230120
  Transmission Date: 20230418
  Serious: Yes (Hospitalization, Other)
  Sender: FDA-Public Use
  Company Number: ET-IPCA LABORATORIES LIMITED-IPC-2023-ET-000097

PATIENT

DRUGS (1)
  1. ONDANSETRON [Suspect]
     Active Substance: ONDANSETRON
     Indication: Dyspepsia
     Dosage: 8 MILLIGRAM
     Route: 042

REACTIONS (4)
  - Kounis syndrome [Recovered/Resolved]
  - Arteriospasm coronary [Recovered/Resolved]
  - Hypersensitivity [Recovered/Resolved]
  - Myocardial injury [Recovered/Resolved]
